FAERS Safety Report 18072939 (Version 3)
Quarter: 2020Q3

REPORT INFORMATION
  Report Type: Spontaneous
  Country: US (occurrence: US)
  Receive Date: 20200727
  Receipt Date: 20200828
  Transmission Date: 20201103
  Serious: Yes (Other)
  Sender: FDA-Public Use
  Company Number: US-GLAXOSMITHKLINE-US2020AMR141397

PATIENT
  Sex: Female

DRUGS (2)
  1. ZEJULA [Suspect]
     Active Substance: NIRAPARIB
     Indication: OVARIAN CANCER
     Dosage: 100 MG, QD(IN THE AM)
     Dates: start: 20200516
  2. ZEJULA [Suspect]
     Active Substance: NIRAPARIB
     Dosage: 200 MG, QD
     Route: 048

REACTIONS (7)
  - Skin burning sensation [Unknown]
  - Computerised tomogram abnormal [Unknown]
  - Hypertension [Unknown]
  - Neoplasm malignant [Unknown]
  - Recurrent cancer [Unknown]
  - Pruritus [Unknown]
  - Photosensitivity reaction [Unknown]
